FAERS Safety Report 23976677 (Version 2)
Quarter: 2024Q3

REPORT INFORMATION
  Report Type: Spontaneous
  Country: HU (occurrence: HU)
  Receive Date: 20240614
  Receipt Date: 20240708
  Transmission Date: 20241016
  Serious: Yes (Other)
  Sender: INCYTE
  Company Number: HU-INCYTE CORPORATION-2024IN006240

PATIENT

DRUGS (8)
  1. TAFASITAMAB [Suspect]
     Active Substance: TAFASITAMAB
     Indication: Follicular lymphoma recurrent
     Dosage: 8 CYCLES
     Route: 065
  2. RITUXIMAB [Suspect]
     Active Substance: RITUXIMAB
     Indication: Follicular lymphoma recurrent
     Dosage: 8 CYCLES
     Route: 065
  3. CYTARABINE [Suspect]
     Active Substance: CYTARABINE
     Indication: Follicular lymphoma recurrent
     Dosage: UNK
     Route: 065
  4. LENALIDOMIDE [Suspect]
     Active Substance: LENALIDOMIDE
     Indication: Follicular lymphoma recurrent
     Dosage: 8 CYCLES
     Route: 065
  5. CARBOPLATIN [Suspect]
     Active Substance: CARBOPLATIN
     Indication: Follicular lymphoma recurrent
     Dosage: UNK
     Route: 042
  6. MOSUNETUZUMAB [Suspect]
     Active Substance: MOSUNETUZUMAB
     Indication: Follicular lymphoma recurrent
     Dosage: UNK
     Route: 065
     Dates: start: 202402
  7. DEXAMETHASONE [Suspect]
     Active Substance: DEXAMETHASONE
  8. RITUXIMAB [Suspect]
     Active Substance: RITUXIMAB

REACTIONS (8)
  - Follicular lymphoma [Unknown]
  - Cholecystitis [Unknown]
  - Malignant neoplasm progression [Unknown]
  - Disease progression [Unknown]
  - COVID-19 [Unknown]
  - Influenza [Unknown]
  - Cholelithiasis [Unknown]
  - Off label use [Unknown]
